FAERS Safety Report 8514954-5 (Version None)
Quarter: 2012Q3

REPORT INFORMATION
  Report Type: 
  Country: None (occurrence: None)
  Receive Date: 20120717
  Receipt Date: 20120702
  Transmission Date: 20120928
  Serious: Yes (Death, Hospitalization, Other)
  Sender: FDA-Public Use
  Company Number: JP-ROCHE-1084007

PATIENT
  Sex: Male
  Weight: 79 kg

DRUGS (10)
  1. LASIX [Concomitant]
     Indication: HYPERURICAEMIA
     Route: 048
  2. ALLOPURINOL [Concomitant]
     Indication: HYPERURICAEMIA
     Route: 048
     Dates: start: 20100801
  3. PENLES [Concomitant]
     Indication: PUNCTURE SITE PAIN
     Route: 062
  4. LOSARTAN POTASSIUM [Concomitant]
     Indication: HYPERTENSION
     Route: 048
     Dates: start: 20100801
  5. DOXAZOSIN MESYLATE [Concomitant]
     Indication: HYPERTENSION
     Route: 048
     Dates: start: 20100801
  6. NOVORAPID [Concomitant]
     Indication: DIABETES MELLITUS
     Route: 058
     Dates: start: 20100801
  7. AMLODIPINE [Concomitant]
     Indication: HYPERTENSION
     Dosage: DISCONTINUANCE AT MORNING OF DIALYSIS DAY
     Route: 048
     Dates: start: 20100801
  8. PURSENNID [Concomitant]
     Indication: CONSTIPATION
     Route: 048
     Dates: start: 20100801
  9. METHOXY POLYETHYLENE GLYCOL-EPOETIN BETA [Suspect]
     Indication: NEPHROGENIC ANAEMIA
     Route: 042
     Dates: start: 20120305, end: 20120430
  10. RENAGEL [Concomitant]
     Indication: HYPERPHOSPHATAEMIA
     Route: 048

REACTIONS (4)
  - INTESTINAL OBSTRUCTION [None]
  - SEPTIC SHOCK [None]
  - THALAMUS HAEMORRHAGE [None]
  - INTRAVENTRICULAR HAEMORRHAGE [None]
